FAERS Safety Report 8160891-8 (Version None)
Quarter: 2012Q1

REPORT INFORMATION
  Report Type: 
  Country: None (occurrence: None)
  Receive Date: 20120223
  Receipt Date: 20120214
  Transmission Date: 20120608
  Serious: No
  Sender: FDA-Public Use
  Company Number: US-ASTRAZENECA-2011SE15156

PATIENT
  Age: 54 Year
  Sex: Female
  Weight: 86.2 kg

DRUGS (16)
  1. SEROQUEL [Suspect]
     Route: 048
  2. SEROQUEL [Suspect]
     Route: 048
  3. FUROSEMIDE [Concomitant]
  4. VITAMIN TAB [Concomitant]
  5. LISINOPRIL [Concomitant]
     Indication: BLOOD PRESSURE
  6. CYMBALTA [Concomitant]
  7. TRICOR [Concomitant]
  8. ADVAIR DISKUS 100/50 [Concomitant]
  9. SEROQUEL [Suspect]
     Route: 048
  10. LOVASTATIN [Concomitant]
  11. METFORMIN HCL [Concomitant]
  12. SEROQUEL [Suspect]
     Indication: BIPOLAR DISORDER
     Dosage: 900 MG TOTAL DAILY
     Route: 048
     Dates: start: 19990101, end: 20080101
  13. SEROQUEL [Suspect]
     Dosage: TOTAL DAILY: CUTTING A 100MG TABLET IN HALF
     Route: 048
  14. SEROQUEL [Suspect]
     Dosage: 200 MG AND 300 MG
     Route: 048
  15. METOPROLOL TARTRATE [Concomitant]
  16. HUMALOG [Concomitant]

REACTIONS (7)
  - PALPITATIONS [None]
  - HEART RATE ABNORMAL [None]
  - WRONG TECHNIQUE IN DRUG USAGE PROCESS [None]
  - WEIGHT INCREASED [None]
  - DIABETES MELLITUS [None]
  - BLOOD GLUCOSE ABNORMAL [None]
  - BLOOD CHOLESTEROL INCREASED [None]
